FAERS Safety Report 18558538 (Version 2)
Quarter: 2021Q1

REPORT INFORMATION
  Report Type: Spontaneous
  Country: PL (occurrence: PL)
  Receive Date: 20201130
  Receipt Date: 20210115
  Transmission Date: 20210419
  Serious: Yes (Hospitalization, Other)
  Sender: FDA-Public Use
  Company Number: NVSC2020PL309916

PATIENT
  Age: 47 Year
  Sex: Female
  Weight: 75.5 kg

DRUGS (7)
  1. RANOFREN [Concomitant]
     Indication: PRODUCT USED FOR UNKNOWN INDICATION
     Dosage: 5 MG, BID (1X1 TABLET)
     Route: 065
     Dates: start: 20190911
  2. METHOTREXATE. [Suspect]
     Active Substance: METHOTREXATE
     Indication: PRODUCT USED FOR UNKNOWN INDICATION
     Dosage: 3 DF, QW
     Route: 048
     Dates: start: 20190529, end: 20190626
  3. METHOTREXATE. [Suspect]
     Active Substance: METHOTREXATE
     Dosage: 4 DF, QW
     Route: 048
     Dates: start: 20190703, end: 20190904
  4. METHOTREXATE. [Suspect]
     Active Substance: METHOTREXATE
     Indication: PSORIATIC ARTHROPATHY
     Dosage: 25 MG, QW
     Route: 058
     Dates: start: 20190911, end: 20191016
  5. HEPAREGEN [Concomitant]
     Indication: PRODUCT USED FOR UNKNOWN INDICATION
     Dosage: 2 DF, BID (2X2 TABLETS)
     Route: 065
     Dates: start: 20190911
  6. CONTIX [Concomitant]
     Indication: PRODUCT USED FOR UNKNOWN INDICATION
     Dosage: 20 MG, BID (1X1 TABLETS ON AN EMPTY STOMACH)
     Route: 048
     Dates: start: 20190911
  7. ACIDUM FOLICUM [Concomitant]
     Active Substance: FOLIC ACID
     Indication: PSORIATIC ARTHROPATHY
     Dosage: 15 MG, QW
     Route: 048
     Dates: start: 20190529, end: 20191016

REACTIONS (6)
  - Cholelithiasis [Unknown]
  - Gastroenteritis [Recovered/Resolved with Sequelae]
  - Vomiting [Unknown]
  - Gastritis [Unknown]
  - Asthenia [Unknown]
  - Abdominal pain upper [Unknown]

NARRATIVE: CASE EVENT DATE: 20191017
